FAERS Safety Report 4467715-0 (Version None)
Quarter: 2004Q4

REPORT INFORMATION
  Report Type: 
  Country: None (occurrence: None)
  Receive Date: 20041007
  Receipt Date: 20040930
  Transmission Date: 20050328
  Serious: Yes (Life-Threatening, Hospitalization, Other)
  Sender: FDA-Public Use
  Company Number: CA-JNJFOC-20040205884

PATIENT
  Sex: Female
  Weight: 59.42 kg

DRUGS (9)
  1. REMICADE [Suspect]
     Route: 042
  2. REMICADE [Suspect]
     Route: 042
  3. REMICADE [Suspect]
     Indication: CROHN'S DISEASE
     Dosage: HAS RECEIVED A TOTAL OF FOUR INFUSIONS TO DATE.   FIRST DOSE 19-JAN-2004.  SECOND DOSE 05-FEB-2004
     Route: 042
  4. IMURAN [Concomitant]
  5. PANTASA [Concomitant]
  6. PANTASA [Concomitant]
  7. PANTASA [Concomitant]
  8. DOMPERIDONE [Concomitant]
  9. THIAMINE [Concomitant]

REACTIONS (9)
  - DIZZINESS [None]
  - INTESTINAL FISTULA [None]
  - INTESTINAL PERFORATION [None]
  - NASOPHARYNGITIS [None]
  - PERITONITIS [None]
  - POST PROCEDURAL COMPLICATION [None]
  - PRURITUS [None]
  - PRURITUS GENERALISED [None]
  - VOMITING [None]
